FAERS Safety Report 16569647 (Version 1)
Quarter: 2019Q3

REPORT INFORMATION
  Report Type: Spontaneous
  Country: US (occurrence: US)
  Receive Date: 20190715
  Receipt Date: 20190715
  Transmission Date: 20191004
  Serious: Yes (Hospitalization)
  Sender: FDA-Public Use
  Company Number: US-HORIZON-PRO-0144-2019

PATIENT
  Age: 20 Year
  Sex: Female

DRUGS (8)
  1. ZOFRAN [Concomitant]
     Active Substance: ONDANSETRON HYDROCHLORIDE
  2. MELATONIN [Concomitant]
     Active Substance: MELATONIN
  3. CHLOROPHYLL [Concomitant]
  4. POTASSIUM CITRATE. [Concomitant]
     Active Substance: POTASSIUM CITRATE
  5. LEVOCARNITINE. [Concomitant]
     Active Substance: LEVOCARNITINE
  6. NITROFURANTOIN. [Concomitant]
     Active Substance: NITROFURANTOIN
  7. SODIUM BICARB [Concomitant]
     Active Substance: SODIUM BICARBONATE
  8. PROCYSBI [Suspect]
     Active Substance: CYSTEAMINE BITARTRATE
     Indication: AMINO ACID METABOLISM DISORDER
     Dosage: 825 MG TWO (2) TIMES A DAY

REACTIONS (1)
  - Cytomegalovirus infection [Unknown]
